FAERS Safety Report 12246652 (Version 4)
Quarter: 2016Q2

REPORT INFORMATION
  Report Type: Spontaneous
  Country: US (occurrence: US)
  Receive Date: 20160407
  Receipt Date: 20160513
  Transmission Date: 20160815
  Serious: Yes (Other)
  Sender: FDA-Public Use
  Company Number: US-LUNDBECK-DKLU2011761

PATIENT
  Age: 69 Year
  Sex: Female

DRUGS (5)
  1. NORTHERA [Suspect]
     Active Substance: DROXIDOPA
     Route: 065
  2. NORTHERA [Suspect]
     Active Substance: DROXIDOPA
     Route: 065
  3. NORTHERA [Suspect]
     Active Substance: DROXIDOPA
     Dosage: ON TITRATION SCHEDULE B
     Route: 065
  4. NORTHERA [Suspect]
     Active Substance: DROXIDOPA
     Route: 065
  5. NORTHERA [Suspect]
     Active Substance: DROXIDOPA
     Indication: POSTURAL ORTHOSTATIC TACHYCARDIA SYNDROME
     Dosage: 2 IN AM, SOMETIMES 4 IN A DAY, CAN TAKE UP TO 6 IF NEEDED
     Route: 065

REACTIONS (8)
  - Blood pressure fluctuation [Unknown]
  - Burning sensation [Unknown]
  - Hypertension [Unknown]
  - Drug ineffective for unapproved indication [Unknown]
  - Dizziness [Unknown]
  - Fatigue [Unknown]
  - Cystitis [Unknown]
  - Hypotension [Unknown]

NARRATIVE: CASE EVENT DATE: 20160324
